FAERS Safety Report 12497023 (Version 2)
Quarter: 2016Q3

REPORT INFORMATION
  Report Type: Spontaneous
  Country: CO (occurrence: CO)
  Receive Date: 20160624
  Receipt Date: 20160728
  Transmission Date: 20161109
  Serious: Yes (Hospitalization, Other)
  Sender: FDA-Public Use
  Company Number: CO-ALEXION-A201604645

PATIENT
  Age: 43 Year
  Sex: Male
  Weight: 60 kg

DRUGS (6)
  1. SOLIRIS [Suspect]
     Active Substance: ECULIZUMAB
     Dosage: 900 MG, Q2W
     Route: 042
     Dates: start: 20151209
  2. CYCLOSPORIN [Concomitant]
     Active Substance: CYCLOSPORINE
     Indication: APLASTIC ANAEMIA
     Dosage: 100 MG, Q8H
     Route: 048
     Dates: start: 20160501
  3. ZANTAC [Concomitant]
     Active Substance: RANITIDINE HYDROCHLORIDE
     Indication: APLASTIC ANAEMIA
     Dosage: 50 MG, Q8H
     Route: 048
     Dates: start: 20160501
  4. PREDNISOLONE. [Concomitant]
     Active Substance: PREDNISOLONE
     Indication: APLASTIC ANAEMIA
     Dosage: 50 MG, QD
     Route: 048
     Dates: start: 20160501
  5. SOLIRIS [Suspect]
     Active Substance: ECULIZUMAB
     Indication: PAROXYSMAL NOCTURNAL HAEMOGLOBINURIA
     Dosage: 600 MG, QW
     Route: 042
     Dates: start: 20151111, end: 20151202
  6. DANAZOL. [Concomitant]
     Active Substance: DANAZOL
     Indication: APLASTIC ANAEMIA
     Dosage: 200 MG, Q8H
     Route: 048
     Dates: start: 20160501

REACTIONS (5)
  - Decreased immune responsiveness [None]
  - Thrombocytopenia [Not Recovered/Not Resolved]
  - Drug ineffective [Not Recovered/Not Resolved]
  - Abscess oral [Recovered/Resolved]
  - Gingivitis [Recovered/Resolved]

NARRATIVE: CASE EVENT DATE: 20151217
